FAERS Safety Report 17933793 (Version 6)
Quarter: 2021Q3

REPORT INFORMATION
  Report Type: Report from Study
  Country: US (occurrence: US)
  Receive Date: 20200623
  Receipt Date: 20210929
  Transmission Date: 20211014
  Serious: Yes (Death, Hospitalization, Other)
  Sender: FDA-Public Use
  Company Number: US-TAKEDA-2020TUS005869

PATIENT
  Age: 74 Year
  Sex: Female
  Weight: 61 kg

DRUGS (3)
  1. PONATINIB [Suspect]
     Active Substance: PONATINIB
     Dosage: 15 MILLIGRAM, QD
     Route: 048
  2. PONATINIB [Suspect]
     Active Substance: PONATINIB
     Indication: ACUTE LYMPHOCYTIC LEUKAEMIA
     Dosage: 30 MILLIGRAM, QD
     Route: 048
     Dates: end: 20200120
  3. TYLENOL [Concomitant]
     Active Substance: ACETAMINOPHEN
     Dosage: UNK
     Route: 065

REACTIONS (12)
  - Death [Fatal]
  - Fall [Unknown]
  - Weight fluctuation [Unknown]
  - Anorectal discomfort [Unknown]
  - Infection [Unknown]
  - Proctalgia [Unknown]
  - Fractured sacrum [Unknown]
  - Product dose omission issue [Unknown]
  - Spinal fracture [Unknown]
  - Pain [Unknown]
  - Confusional state [Unknown]
  - Rectal fissure [Recovered/Resolved]

NARRATIVE: CASE EVENT DATE: 20200120
